FAERS Safety Report 8537043-2 (Version None)
Quarter: 2012Q3

REPORT INFORMATION
  Report Type: 
  Country: None (occurrence: None)
  Receive Date: 20120718
  Receipt Date: 20120718
  Transmission Date: 20120928
  Serious: Yes (Other)
  Sender: FDA-Public Use
  Company Number: None

PATIENT
  Sex: Male

DRUGS (1)
  1. ZYTIGA [Suspect]
     Indication: ONCOLOGIC COMPLICATION
     Dosage: 250MG BID ORAL
     Route: 048
     Dates: start: 20120618, end: 20120717

REACTIONS (1)
  - DYSPNOEA [None]
